FAERS Safety Report 23094351 (Version 1)
Quarter: 2023Q4

REPORT INFORMATION
  Report Type: Report from Study
  Country: US (occurrence: US)
  Receive Date: 20231023
  Receipt Date: 20231023
  Transmission Date: 20240110
  Serious: Yes (Hospitalization)
  Sender: FDA-Public Use
  Company Number: US-ABBVIE-5459010

PATIENT
  Sex: Male

DRUGS (2)
  1. SKYRIZI [Suspect]
     Active Substance: RISANKIZUMAB-RZAA
     Indication: Psoriasis
     Dosage: TIME INTERVAL: TOTAL: FORM STRENGTH WAS 150 MILLIGRAM/ML?WEEK 4?THEN EVERY 12 WEEKS THEREAFTER
     Route: 058
     Dates: start: 20230906, end: 20230906
  2. SKYRIZI [Suspect]
     Active Substance: RISANKIZUMAB-RZAA
     Dosage: TIME INTERVAL: TOTAL: FORM STRENGTH WAS 150 MILLIGRAM/ML?WEEK 0
     Route: 058
     Dates: start: 20230809, end: 20230809

REACTIONS (2)
  - Cholecystitis infective [Recovered/Resolved]
  - Arthralgia [Unknown]

NARRATIVE: CASE EVENT DATE: 20230101
